FAERS Safety Report 25554516 (Version 1)
Quarter: 2025Q3

REPORT INFORMATION
  Report Type: Spontaneous
  Country: JP (occurrence: JP)
  Receive Date: 20250715
  Receipt Date: 20250715
  Transmission Date: 20251020
  Serious: Yes (Other)
  Sender: NOVARTIS
  Company Number: JP-002147023-NVSJ2025JP007261

PATIENT
  Age: 52 Year
  Sex: Female

DRUGS (6)
  1. DABRAFENIB [Suspect]
     Active Substance: DABRAFENIB
     Indication: Acral lentiginous melanoma stage III
     Route: 065
  2. DABRAFENIB [Suspect]
     Active Substance: DABRAFENIB
     Indication: BRAF V600E mutation positive
     Route: 065
  3. DABRAFENIB [Suspect]
     Active Substance: DABRAFENIB
     Route: 065
  4. TRAMETINIB [Suspect]
     Active Substance: TRAMETINIB
     Indication: Acral lentiginous melanoma stage III
     Route: 065
  5. TRAMETINIB [Suspect]
     Active Substance: TRAMETINIB
     Indication: BRAF V600E mutation positive
     Route: 065
  6. TRAMETINIB [Suspect]
     Active Substance: TRAMETINIB
     Route: 065

REACTIONS (1)
  - Hepatic function abnormal [Recovering/Resolving]
